FAERS Safety Report 4399862-6 (Version None)
Quarter: 2004Q3

REPORT INFORMATION
  Report Type: 
  Country: None (occurrence: None)
  Receive Date: 20040714
  Receipt Date: 20040628
  Transmission Date: 20050211
  Serious: Yes (Hospitalization)
  Sender: FDA-Public Use
  Company Number: AU_040607827

PATIENT
  Age: 53 Year
  Sex: Male

DRUGS (3)
  1. FLUOXETINE HCL [Suspect]
     Indication: DEPRESSION
     Dosage: 80 MG DAY
  2. OLANZAPINE [Suspect]
     Indication: DEPRESSION
     Dosage: 5 MG DAY
  3. DIAZEPAM [Concomitant]

REACTIONS (2)
  - DRUG INTERACTION [None]
  - SEROTONIN SYNDROME [None]
